FAERS Safety Report 7866547-0 (Version None)
Quarter: 2011Q4

REPORT INFORMATION
  Report Type: 
  Country: None (occurrence: None)
  Receive Date: 20111028
  Receipt Date: 20110705
  Transmission Date: 20120403
  Serious: No
  Sender: FDA-Public Use
  Company Number: US-GLAXOSMITHKLINE-A0934949A

PATIENT
  Age: 56 Year
  Sex: Male

DRUGS (5)
  1. CAPTOPRIL [Concomitant]
  2. SIMVASTATIN [Concomitant]
  3. TOPROL-XL [Concomitant]
  4. OMEPRAZOLE [Concomitant]
  5. ADVAIR DISKUS 100/50 [Suspect]
     Indication: ASTHMA
     Route: 055

REACTIONS (1)
  - HYPERHIDROSIS [None]
